FAERS Safety Report 10252396 (Version 1)
Quarter: 2014Q2

REPORT INFORMATION
  Report Type: Spontaneous
  Country: BE (occurrence: None)
  Receive Date: 20140619
  Receipt Date: 20140619
  Transmission Date: 20141212
  Serious: Yes (Hospitalization)
  Sender: FDA-Public Use
  Company Number: ABR_01679_2014

PATIENT
  Age: 20 Year
  Sex: Male

DRUGS (2)
  1. AMPHETAMINE (AMPHETAMINE) [Suspect]
     Dosage: DF
     Route: 048
  2. DIAZEPAM (DIAZEPAM) [Suspect]

REACTIONS (9)
  - Aggression [None]
  - Respiratory depression [None]
  - Apnoea [None]
  - Haematemesis [None]
  - Leukocytosis [None]
  - C-reactive protein increased [None]
  - Drug screen positive [None]
  - Pulmonary alveolar haemorrhage [None]
  - Drug abuse [None]
